FAERS Safety Report 4989882-2 (Version None)
Quarter: 2006Q2

REPORT INFORMATION
  Report Type: 
  Country: None (occurrence: None)
  Receive Date: 20060428
  Receipt Date: 20060419
  Transmission Date: 20061013
  Serious: Yes (Hospitalization)
  Sender: FDA-Public Use
  Company Number: 2006053594

PATIENT
  Age: 58 Year
  Sex: Female

DRUGS (1)
  1. SUTENT [Suspect]
     Indication: RENAL CELL CARCINOMA STAGE UNSPECIFIED
     Dosage: 50 MG (59 MG, 1N 1 D), ORAL
     Route: 048
     Dates: start: 20051128, end: 20060102

REACTIONS (4)
  - JAUNDICE [None]
  - MUCOSAL HAEMORRHAGE [None]
  - SKIN HAEMORRHAGE [None]
  - THROMBOCYTOPENIA [None]
